FAERS Safety Report 4433810-5 (Version None)
Quarter: 2004Q3

REPORT INFORMATION
  Report Type: 
  Country: None (occurrence: None)
  Receive Date: 20040824
  Receipt Date: 20040824
  Transmission Date: 20050211
  Serious: Yes (Other)
  Sender: FDA-Public Use
  Company Number: None

PATIENT
  Age: 49 Year
  Sex: Female
  Weight: 63.05 kg

DRUGS (2)
  1. SERZONE [Suspect]
     Indication: MIGRAINE
     Dosage: 1 TAB   BID   ORAL
     Route: 048
  2. NEFAZODONE HCL [Suspect]
     Dosage: 1 TAB   BID  ORAL
     Route: 048

REACTIONS (6)
  - DYSPNOEA [None]
  - INSOMNIA [None]
  - IRRITABILITY [None]
  - NERVOUSNESS [None]
  - PALPITATIONS [None]
  - RESTLESSNESS [None]
